FAERS Safety Report 24308947 (Version 1)
Quarter: 2024Q3

REPORT INFORMATION
  Report Type: Spontaneous
  Country: US (occurrence: None)
  Receive Date: 20240911
  Receipt Date: 20240911
  Transmission Date: 20241017
  Serious: Yes (unspecified)
  Sender: Public
  Company Number: None

PATIENT
  Age: 49 Year
  Sex: Male
  Weight: 103.5 kg

DRUGS (1)
  1. DUPIXENT [Suspect]
     Active Substance: DUPILUMAB
     Indication: Dermatitis atopic
     Dosage: OTHER FREQUENCY : 2 WEEKS;?
     Route: 058
     Dates: start: 20240126

REACTIONS (3)
  - Eye pruritus [None]
  - Lacrimation increased [None]
  - Ocular hyperaemia [None]

NARRATIVE: CASE EVENT DATE: 20240911
